FAERS Safety Report 4662694-5 (Version None)
Quarter: 2005Q2

REPORT INFORMATION
  Report Type: 
  Country: None (occurrence: None)
  Receive Date: 20050516
  Receipt Date: 20050509
  Transmission Date: 20051028
  Serious: Yes (Disabling)
  Sender: FDA-Public Use
  Company Number: US-GLAXOSMITHKLINE-A0557761A

PATIENT
  Sex: Female

DRUGS (4)
  1. LAMICTAL [Suspect]
     Indication: BIPOLAR DISORDER
     Route: 048
  2. WELLBUTRIN [Suspect]
     Indication: BIPOLAR DISORDER
     Route: 048
  3. LEXAPRO [Concomitant]
  4. NAPROXEN [Concomitant]

REACTIONS (6)
  - DRUG INEFFECTIVE [None]
  - PRURITUS [None]
  - RASH [None]
  - TREMOR [None]
  - URTICARIA [None]
  - URTICARIA GENERALISED [None]
